FAERS Safety Report 4358006-7 (Version None)
Quarter: 2004Q2

REPORT INFORMATION
  Report Type: 
  Country: None (occurrence: None)
  Receive Date: 20040511
  Receipt Date: 20040427
  Transmission Date: 20050107
  Serious: Yes (Hospitalization, Other)
  Sender: FDA-Public Use
  Company Number: 2004S1001286

PATIENT
  Age: 73 Year
  Sex: Female

DRUGS (5)
  1. SPARA (SPARFLOXACIN) TABLETS 200MG [Suspect]
     Indication: BRONCHITIS ACUTE
     Dosage: 200 MG/DAY, ORAL
     Route: 048
     Dates: start: 20040312, end: 20040314
  2. PHENYTOIN [Concomitant]
  3. PROXETINE [Concomitant]
  4. CARBOCYSTEINE [Concomitant]
  5. CLARITHROMYCIN [Concomitant]

REACTIONS (6)
  - ANOREXIA [None]
  - COUGH [None]
  - DEPRESSED LEVEL OF CONSCIOUSNESS [None]
  - FLUSHING [None]
  - HYPERHIDROSIS [None]
  - HYPOGLYCAEMIA [None]
